FAERS Safety Report 16417251 (Version 1)
Quarter: 2019Q2

REPORT INFORMATION
  Report Type: Spontaneous
  Country: TW (occurrence: TW)
  Receive Date: 20190611
  Receipt Date: 20190611
  Transmission Date: 20190711
  Serious: Yes (Death, Hospitalization)
  Sender: FDA-Public Use
  Company Number: TW-CELGENEUS-TWN-20190602011

PATIENT
  Age: 61 Year
  Sex: Male
  Weight: 50.2 kg

DRUGS (1)
  1. POMALYST [Suspect]
     Active Substance: POMALIDOMIDE
     Indication: PLASMA CELL MYELOMA
     Dosage: 4 MILLIGRAM
     Route: 048
     Dates: start: 20181203, end: 20190225

REACTIONS (2)
  - Plasma cell myeloma [Fatal]
  - Pyrexia [Fatal]

NARRATIVE: CASE EVENT DATE: 201904
